FAERS Safety Report 9307532 (Version 1)
Quarter: 2013Q2

REPORT INFORMATION
  Report Type: Spontaneous
  Country: US (occurrence: US)
  Receive Date: 20130524
  Receipt Date: 20130524
  Transmission Date: 20140414
  Serious: Yes (Hospitalization, Other)
  Sender: FDA-Public Use
  Company Number: US-NOVOPROD-378240

PATIENT
  Age: 42 Year
  Sex: Male
  Weight: 99.77 kg

DRUGS (1)
  1. VICTOZA [Suspect]
     Indication: TYPE 2 DIABETES MELLITUS
     Dosage: UNK
     Route: 058
     Dates: start: 2011, end: 201205

REACTIONS (2)
  - Injection site nodule [Unknown]
  - Injection site pain [Not Recovered/Not Resolved]
